FAERS Safety Report 8447039-7 (Version None)
Quarter: 2012Q2

REPORT INFORMATION
  Report Type: 
  Country: None (occurrence: None)
  Receive Date: 20120612
  Receipt Date: 20120604
  Transmission Date: 20120825
  Serious: Yes (Other)
  Sender: FDA-Public Use
  Company Number: 2012SP023574

PATIENT
  Age: 60 Year
  Sex: Female

DRUGS (8)
  1. CARMUSTINE [Suspect]
     Indication: OLIGODENDROGLIOMA
     Dosage: 150 MG/M2; IV
     Route: 042
     Dates: start: 20090623, end: 20091106
  2. ACETAMINOPHEN [Concomitant]
  3. BICARBONATE [Concomitant]
  4. ZOPICLONE [Concomitant]
  5. TEMODAL [Suspect]
     Indication: OLIGODENDROGLIOMA
     Dosage: 110 MG/MG; PO
     Route: 048
     Dates: start: 20090623, end: 20091111
  6. FUNGIZONE [Concomitant]
  7. POLYETHYLENE GLYCOL [Concomitant]
  8. ELUDRIL [Concomitant]

REACTIONS (2)
  - THROMBOCYTOPENIA [None]
  - PETECHIAE [None]
